FAERS Safety Report 5903752-4 (Version None)
Quarter: 2008Q3

REPORT INFORMATION
  Report Type: 
  Country: None (occurrence: None)
  Receive Date: 20080930
  Receipt Date: 20080918
  Transmission Date: 20090109
  Serious: Yes (Hospitalization, Other)
  Sender: FDA-Public Use
  Company Number: US-ELI_LILLY_AND_COMPANY-US200809002034

PATIENT
  Sex: Male

DRUGS (7)
  1. BYETTA [Suspect]
     Dosage: 5 UG, UNKNOWN
     Dates: start: 20080821, end: 20080825
  2. GLYBURIDE [Concomitant]
     Dosage: 5 MG, DAILY (1/D)
     Dates: end: 20080825
  3. FENOFIBRATE [Concomitant]
     Dosage: 160 MG, DAILY (1/D)
  4. VASOTEC [Concomitant]
     Dosage: 10 MG, DAILY (1/D)
  5. PRILOSEC [Concomitant]
     Dosage: 20 MG, DAILY (1/D)
  6. PERCOCET [Concomitant]
     Dosage: UNK, AS NEEDED
  7. TRANXENE [Concomitant]
     Indication: INSOMNIA
     Dosage: 15 MG, EACH EVENING

REACTIONS (5)
  - ABDOMINAL PAIN [None]
  - BLOOD GLUCOSE INCREASED [None]
  - DIARRHOEA [None]
  - HYPERTRIGLYCERIDAEMIA [None]
  - NAUSEA [None]
